FAERS Safety Report 7736301-9 (Version None)
Quarter: 2011Q3

REPORT INFORMATION
  Report Type: 
  Country: None (occurrence: None)
  Receive Date: 20110908
  Receipt Date: 20110829
  Transmission Date: 20111222
  Serious: Yes (Other)
  Sender: FDA-Public Use
  Company Number: US-BAYER-2011-082634

PATIENT
  Age: 27 Year
  Sex: Female
  Weight: 68.027 kg

DRUGS (4)
  1. DROSPIRENONE AND ETHINYL ESTRADIOL [Suspect]
     Dosage: UNK
     Dates: start: 20020101, end: 20070101
  2. YAZ [Suspect]
     Dosage: UNK
     Dates: start: 20090101, end: 20100101
  3. YASMIN [Suspect]
     Dosage: UNK
     Dates: start: 20020101, end: 20070101
  4. YAZ [Suspect]
     Indication: CONTRACEPTION
     Dosage: UNK
     Dates: start: 20020101, end: 20070101

REACTIONS (2)
  - CHOLECYSTECTOMY [None]
  - CHOLELITHIASIS [None]
